FAERS Safety Report 8229328-4 (Version None)
Quarter: 2012Q1

REPORT INFORMATION
  Report Type: 
  Country: None (occurrence: None)
  Receive Date: 20120322
  Receipt Date: 20120315
  Transmission Date: 20120608
  Serious: Yes (Other)
  Sender: FDA-Public Use
  Company Number: BR-PFIZER INC-2012069778

PATIENT
  Age: 66 Year
  Sex: Female

DRUGS (2)
  1. BRIMONIDINE TARTRATE [Concomitant]
  2. XALATAN [Suspect]
     Indication: GLAUCOMA
     Dosage: 3 UG, 1X/DAY (ONE DROP IN BOTH EYES, ONCE DAILY)
     Route: 047
     Dates: start: 20100315

REACTIONS (2)
  - INTRAOCULAR PRESSURE INCREASED [None]
  - INAPPROPRIATE SCHEDULE OF DRUG ADMINISTRATION [None]
